FAERS Safety Report 4539193-4 (Version None)
Quarter: 2004Q4

REPORT INFORMATION
  Report Type: 
  Country: None (occurrence: None)
  Receive Date: 20041222
  Receipt Date: 20041210
  Transmission Date: 20050328
  Serious: Yes (Disabling)
  Sender: FDA-Public Use
  Company Number: SUSI-2004-00879

PATIENT
  Age: 63 Year
  Sex: Female

DRUGS (3)
  1. PENTASA [Suspect]
     Indication: COLITIS ULCERATIVE
     Dosage: 5 MG, 3X/DAY:TID, ORAL
     Route: 048
     Dates: start: 20041109, end: 20041110
  2. BUDESONIDE (BUDESONIDE) [Concomitant]
  3. PREDNISOLONE SODIUM SULFOBENZOATE (PREDNISOLONE SODIUM SULFOBENZOATE) [Concomitant]

REACTIONS (5)
  - ABDOMINAL PAIN [None]
  - DIARRHOEA [None]
  - MUSCLE CRAMP [None]
  - NECK PAIN [None]
  - VOMITING [None]
